FAERS Safety Report 8006133-5 (Version None)
Quarter: 2011Q4

REPORT INFORMATION
  Report Type: 
  Country: None (occurrence: None)
  Receive Date: 20111226
  Receipt Date: 20111213
  Transmission Date: 20120403
  Serious: Yes (Hospitalization)
  Sender: FDA-Public Use
  Company Number: US-ELI_LILLY_AND_COMPANY-US201112004944

PATIENT
  Age: 60 Year
  Sex: Female

DRUGS (2)
  1. CYMBALTA [Suspect]
     Indication: BACK PAIN
     Dosage: 60 MG, UNKNOWN
     Dates: start: 20111206
  2. SOMA [Concomitant]
     Indication: BACK PAIN
     Dosage: UNK
     Dates: start: 20111206

REACTIONS (3)
  - ASPIRATION [None]
  - VOMITING [None]
  - CONSTIPATION [None]
